FAERS Safety Report 7244403-9 (Version None)
Quarter: 2011Q1

REPORT INFORMATION
  Report Type: 
  Country: None (occurrence: None)
  Receive Date: 20110119
  Receipt Date: 20110119
  Transmission Date: 20110831
  Serious: No
  Sender: FDA-Public Use
  Company Number: None

PATIENT
  Age: 24 Year
  Sex: Female
  Weight: 42.6381 kg

DRUGS (1)
  1. LEVAQUIN [Suspect]
     Indication: BRONCHITIS
     Dosage: IV DRIP
     Route: 041
     Dates: start: 20101204, end: 20101204

REACTIONS (18)
  - PAIN IN EXTREMITY [None]
  - DYSPNOEA [None]
  - INSOMNIA [None]
  - BURNING SENSATION [None]
  - FATIGUE [None]
  - NIGHTMARE [None]
  - SENSORY DISTURBANCE [None]
  - ANXIETY [None]
  - INJECTION SITE PAIN [None]
  - PALPITATIONS [None]
  - INFUSION RELATED REACTION [None]
  - HEART RATE INCREASED [None]
  - PARAESTHESIA [None]
  - SENSATION OF HEAVINESS [None]
  - INJECTION SITE DISCOLOURATION [None]
  - INJECTION SITE REACTION [None]
  - REFUSAL OF TREATMENT BY PATIENT [None]
  - INCORRECT DOSE ADMINISTERED [None]
